FAERS Safety Report 9639855 (Version 1)
Quarter: 2013Q4

REPORT INFORMATION
  Report Type: Other
  Country: GB (occurrence: GB)
  Receive Date: 20131023
  Receipt Date: 20131023
  Transmission Date: 20140711
  Serious: Yes (Hospitalization, Other)
  Sender: FDA-Public Use
  Company Number: GB-PERRIGO-13GB010539

PATIENT
  Age: 1 Day
  Sex: Female

DRUGS (1)
  1. EXTRA POWER PAIN RELIEVER 12063/0009 [Suspect]
     Indication: EXPOSURE DURING BREAST FEEDING
     Dosage: 2 DF, UNK
     Route: 050

REACTIONS (2)
  - Toxicity to various agents [Unknown]
  - Product label issue [Unknown]
